FAERS Safety Report 20786626 (Version 1)
Quarter: 2022Q2

REPORT INFORMATION
  Report Type: Spontaneous
  Country: FR (occurrence: FR)
  Receive Date: 20220505
  Receipt Date: 20220505
  Transmission Date: 20220721
  Serious: Yes (Hospitalization)
  Sender: FDA-Public Use
  Company Number: FR-AFSSAPS-PC20221152

PATIENT
  Age: 40 Year
  Sex: Female
  Weight: 59 kg

DRUGS (4)
  1. CETIRIZINE [Suspect]
     Active Substance: CETIRIZINE HYDROCHLORIDE
     Indication: Urticaria
     Dosage: 1/D ()
     Route: 048
  2. ISONIAZID\RIFAMPIN [Suspect]
     Active Substance: ISONIAZID\RIFAMPIN
     Indication: Latent tuberculosis
     Dosage: 2 DOSAGE FORM, DAILY, 2CP/D
     Route: 048
     Dates: start: 20220225, end: 20220329
  3. ESOMEPRAZOLE [Concomitant]
     Active Substance: ESOMEPRAZOLE
     Indication: Product used for unknown indication
     Dosage: UNK
     Route: 048
  4. VENLAFAXINE ALMUS LP 75 mg, gelule a liberation prolongee [Concomitant]
     Indication: Depression
     Dosage: 1/D ()
     Route: 048

REACTIONS (1)
  - Pancreatitis acute [Not Recovered/Not Resolved]

NARRATIVE: CASE EVENT DATE: 20220328
